FAERS Safety Report 9819765 (Version 2)
Quarter: 2014Q1

REPORT INFORMATION
  Report Type: Report from Study
  Country: US (occurrence: US)
  Receive Date: 20140116
  Receipt Date: 20140129
  Transmission Date: 20141002
  Serious: Yes (Hospitalization)
  Sender: FDA-Public Use
  Company Number: US-009507513-1401USA005103

PATIENT
  Age: 80 Year
  Sex: Male
  Weight: 88.3 kg

DRUGS (7)
  1. VORINOSTAT [Suspect]
     Indication: MYELODYSPLASTIC SYNDROME
     Dosage: 300 MG BID ON DAYS 3-9 OF A 28 DAYS^ CYCLE
     Route: 048
     Dates: start: 20131106, end: 20131112
  2. VORINOSTAT [Suspect]
     Dosage: 300 MG BID ON DAYS 3-9 OF A 28 DAYS^ CYCLE
     Route: 048
     Dates: start: 20131204, end: 20131207
  3. AZACITIDINE [Suspect]
     Indication: MYELODYSPLASTIC SYNDROME
     Dosage: 75 MG/M2 SQ OR IV ON DAYS 1-7 OR 75 MG/M2 SQ OR IV ON DAYS 1-5 AND DAYS 8-9 OF A 28 DAYS^ CYCLE
     Dates: start: 20131104
  4. AZACITIDINE [Suspect]
     Dosage: 75 MG/M2 SQ OR IV ON DAYS 1-7 OR 75 MG/M2 SQ OR IV ON DAYS 1-5 AND DAYS 8-9 OF A 28 DAYS^ CYCLE
     Dates: start: 20131202, end: 20131206
  5. CELEBREX [Suspect]
  6. CARDURA [Concomitant]
  7. PROSCAR [Concomitant]

REACTIONS (7)
  - Embolism [Recovering/Resolving]
  - Muscular weakness [Recovering/Resolving]
  - Fatigue [Recovering/Resolving]
  - Lymphocyte count increased [Recovering/Resolving]
  - Platelet count decreased [Recovering/Resolving]
  - Anaemia [Recovering/Resolving]
  - White blood cell count decreased [Recovering/Resolving]
